FAERS Safety Report 4932432-7 (Version None)
Quarter: 2006Q1

REPORT INFORMATION
  Report Type: 
  Country: None (occurrence: None)
  Receive Date: 20060301
  Receipt Date: 20050711
  Transmission Date: 20060701
  Serious: Yes (Other)
  Sender: FDA-Public Use
  Company Number: 2005BH000745

PATIENT
  Age: 45 Year
  Sex: Male
  Weight: 98 kg

DRUGS (11)
  1. EXTRANEAL [Suspect]
     Indication: RENAL FAILURE CHRONIC
     Dosage: 2000 ML; EVERY DAY; IP
     Route: 033
     Dates: start: 20040713
  2. DIANEAL [Concomitant]
  3. LASIX [Concomitant]
  4. FERROMIA [Concomitant]
  5. ROCALTROL [Concomitant]
  6. CALCIUM CARBONATE [Concomitant]
  7. ALLOPURINOL [Concomitant]
  8. ALDOMET [Concomitant]
  9. GASTER [Concomitant]
  10. EPOETIN ALFA [Concomitant]
  11. NIFEDIPINE [Concomitant]

REACTIONS (3)
  - ANAEMIA [None]
  - CONDITION AGGRAVATED [None]
  - URINE OUTPUT DECREASED [None]
